FAERS Safety Report 8852617 (Version 1)
Quarter: 2012Q4

REPORT INFORMATION
  Report Type: 
  Country: ES (occurrence: ES)
  Receive Date: 20121022
  Receipt Date: 20121022
  Transmission Date: 20130627
  Serious: Yes (Hospitalization, Other)
  Sender: FDA-Public Use
  Company Number: PHHY2012ES093100

PATIENT
  Age: 75 Year
  Sex: Male

DRUGS (6)
  1. VOLTAREN [Suspect]
     Indication: PAIN
     Dosage: 200 mg, daily
     Route: 048
     Dates: start: 20110120, end: 20110204
  2. ENALAPRIL [Interacting]
     Indication: HYPERTENSION
     Dosage: 1 DF, UNK
     Dates: start: 2008, end: 20120211
  3. IBUPROFEN [Interacting]
     Dosage: 1.2 g, daily
     Route: 048
     Dates: start: 20110209, end: 20120210
  4. COLCHICINE [Interacting]
     Indication: GOUT
     Dosage: 1 mg, daily
     Route: 048
     Dates: start: 20110204, end: 20120210
  5. CIPROFLOXACIN [Concomitant]
     Indication: URINARY TRACT INFECTION
     Dosage: 1 g, daily
     Route: 048
     Dates: start: 20110131
  6. VOLTAREN [Concomitant]
     Indication: PAIN
     Dosage: 75 mg, UNK
     Route: 030
     Dates: start: 20110209

REACTIONS (4)
  - Renal failure acute [Recovered/Resolved]
  - Blood pressure decreased [Unknown]
  - Oedema peripheral [Unknown]
  - Drug interaction [Unknown]
